FAERS Safety Report 9015837 (Version 1)
Quarter: 2013Q2

REPORT INFORMATION
  Report Type: Spontaneous
  Country: US (occurrence: None)
  Receive Date: 20121231
  Receipt Date: 20130423
  Transmission Date: 20140414
  Serious: Yes (Hospitalization, Other)
  Sender: FDA-Public Use
  Company Number: JPI-P-028099

PATIENT
  Age: 39 Year
  Sex: Female
  Weight: 87.54 kg

DRUGS (7)
  1. XYREM (500 MILLIGRAM/MILLILITERS, SOLUTION) (SODIUM OXYBATE) [Suspect]
     Indication: CATAPLEXY
     Dosage: 3 GM (1.5 GM, 2 IN 1 D), ORAL
     Route: 048
     Dates: start: 20121206, end: 20121213
  2. AMPHETAMINE SALTS [Concomitant]
  3. SIMVASTATIN [Concomitant]
  4. FENOFIBRIC ACID [Concomitant]
  5. VITAMIN D3 [Concomitant]
  6. VITAMIN E [Concomitant]
  7. FESOTERODINE FUMERATE [Concomitant]

REACTIONS (4)
  - Nephrolithiasis [None]
  - Urinary tract infection [None]
  - Blood urine present [None]
  - Back pain [None]
